FAERS Safety Report 8342657-9 (Version None)
Quarter: 2012Q2

REPORT INFORMATION
  Report Type: 
  Country: None (occurrence: None)
  Receive Date: 20120508
  Receipt Date: 20120501
  Transmission Date: 20120825
  Serious: No
  Sender: FDA-Public Use
  Company Number: US-BIOGENIDEC-2012BI014417

PATIENT
  Sex: Female

DRUGS (1)
  1. AVONEX [Suspect]
     Indication: MULTIPLE SCLEROSIS
     Route: 030
     Dates: start: 20110303, end: 20120303

REACTIONS (4)
  - JOINT STIFFNESS [None]
  - ARTHROPATHY [None]
  - ARTHRALGIA [None]
  - ARTHRITIS [None]
